FAERS Safety Report 6987382-1 (Version None)
Quarter: 2010Q3

REPORT INFORMATION
  Report Type: 
  Country: None (occurrence: None)
  Receive Date: 20100916
  Receipt Date: 20100913
  Transmission Date: 20110219
  Serious: Yes (Other)
  Sender: FDA-Public Use
  Company Number: US-ALLERGAN-1011804US

PATIENT
  Age: 74 Year
  Sex: Male

DRUGS (4)
  1. BOTOX [Suspect]
     Indication: TORTICOLLIS
     Dosage: 100 UNITS, SINGLE
     Route: 030
     Dates: start: 20100714, end: 20100714
  2. BOTOX [Suspect]
     Dosage: UNK
     Route: 030
     Dates: start: 20100201, end: 20100201
  3. BENICAR [Concomitant]
     Dosage: UNK
     Dates: start: 20100701
  4. LISINOPRIL [Concomitant]

REACTIONS (2)
  - ANGIOEDEMA [None]
  - URTICARIA [None]
